FAERS Safety Report 4712734-X (Version None)
Quarter: 2005Q3

REPORT INFORMATION
  Report Type: 
  Country: None (occurrence: None)
  Receive Date: 20050701
  Receipt Date: 20050407
  Transmission Date: 20060218
  Serious: Yes (Other)
  Sender: FDA-Public Use
  Company Number: 2005054656

PATIENT
  Age: 38 Year
  Sex: Female
  Weight: 79.3795 kg

DRUGS (2)
  1. ZOLOFT [Suspect]
     Indication: DEPRESSION
     Dosage: 100 MG (100 MG, 1 IN 1 D) ORAL
     Route: 048
  2. FLUOXETINE HCL [Suspect]
     Indication: ILL-DEFINED DISORDER

REACTIONS (4)
  - ABDOMINAL DISCOMFORT [None]
  - ANXIETY [None]
  - DEPRESSION [None]
  - INFLAMMATION [None]
